FAERS Safety Report 10478192 (Version 1)
Quarter: 2014Q3

REPORT INFORMATION
  Report Type: Spontaneous
  Country: AU (occurrence: AU)
  Receive Date: 20140926
  Receipt Date: 20140926
  Transmission Date: 20150326
  Serious: Yes (Hospitalization, Other)
  Sender: FDA-Public Use
  Company Number: AU-WATSON-2014-20477

PATIENT
  Age: 30 Year
  Sex: Male

DRUGS (2)
  1. GENTAMICIN [Concomitant]
     Active Substance: GENTAMICIN
     Indication: CHORIORETINITIS
     Dosage: UNK
     Route: 057
  2. DEXAMETHASONE (UNKNOWN) [Suspect]
     Active Substance: DEXAMETHASONE
     Indication: CHORIORETINITIS
     Dosage: UNK
     Route: 057

REACTIONS (2)
  - Herpes simplex necrotising retinopathy [Recovered/Resolved with Sequelae]
  - Condition aggravated [Recovered/Resolved with Sequelae]
